FAERS Safety Report 5680230-1 (Version None)
Quarter: 2008Q1

REPORT INFORMATION
  Report Type: 
  Country: None (occurrence: None)
  Receive Date: 20080326
  Receipt Date: 20080314
  Transmission Date: 20080703
  Serious: Yes (Death, Hospitalization)
  Sender: FDA-Public Use
  Company Number: FR-ELI_LILLY_AND_COMPANY-FR200802005179

PATIENT
  Age: 61 Year
  Sex: Male
  Weight: 114 kg

DRUGS (8)
  1. XIGRIS [Suspect]
     Indication: SEPTIC SHOCK
     Dosage: UNK, UNK
     Route: 042
     Dates: start: 20080207, end: 20080211
  2. HEPARIN [Concomitant]
     Indication: SEPTIC SHOCK
     Dates: start: 20080206, end: 20080207
  3. HEPARIN [Concomitant]
     Dates: start: 20080217
  4. SOLU-MEDROL [Concomitant]
     Indication: SEPTIC SHOCK
     Dosage: 240 MG, DAILY (1/D)
     Dates: start: 20080207
  5. NORADRENALINE [Concomitant]
     Indication: SEPTIC SHOCK
  6. DOBUTREX [Concomitant]
     Indication: SEPTIC SHOCK
  7. CLAFORAN [Concomitant]
     Indication: SEPTIC SHOCK
  8. TAVANIC [Concomitant]
     Indication: SEPTIC SHOCK

REACTIONS (2)
  - CEREBRAL HAEMATOMA [None]
  - MULTI-ORGAN FAILURE [None]
